FAERS Safety Report 4737403-1 (Version None)
Quarter: 2005Q3

REPORT INFORMATION
  Report Type: 
  Country: None (occurrence: None)
  Receive Date: 20050805
  Receipt Date: 20050725
  Transmission Date: 20060218
  Serious: Yes (Other)
  Sender: FDA-Public Use
  Company Number: 2005068861

PATIENT
  Age: 62 Year
  Sex: Female
  Weight: 92.9874 kg

DRUGS (15)
  1. BEXTRA [Suspect]
     Indication: RHEUMATOID ARTHRITIS
     Dosage: 20 MG (20 MG, 2 IN 1 D), ORAL
     Route: 048
     Dates: start: 20030122
  2. METHOTREXATE [Suspect]
     Indication: PSORIASIS
     Dosage: 5 MG, 1 IN 1 WK, ORAL
     Route: 048
     Dates: start: 20000315
  3. DRUG, UNSPECIFIED (DRUG, UNSPECIFIED) [Suspect]
     Indication: PSORIASIS
     Dosage: SUBCUTANEOUS
     Route: 058
     Dates: start: 20040101, end: 20040101
  4. ETANERCEPT (ETANERCEPT) [Suspect]
     Indication: PSORIASIS
     Dosage: 25 MG (25 MG, 2 IN 1 WK), SUBCUTANEOUS
     Route: 058
     Dates: start: 20040801
  5. PROTOPIC [Suspect]
     Indication: PSORIASIS
     Dosage: TOPICAL
     Route: 061
     Dates: start: 20030201, end: 20030201
  6. KERALYT (SALICYLIC ACID) [Suspect]
     Indication: PSORIASIS
     Dosage: TOPICAL
     Route: 061
     Dates: start: 20030201, end: 20330201
  7. LOTREL [Concomitant]
  8. THEOPHYLLINE [Concomitant]
  9. ADVAIR (FLUTICASONE PROPIONATE, SALMETEROL XINAFOATE) [Concomitant]
  10. PROVENTIL [Concomitant]
  11. CYCLOSPORINE [Concomitant]
  12. OLUX (CLOBETASOL PROPIONATE) [Concomitant]
  13. CLOBETASOL (CLOBETASOL) [Concomitant]
  14. HALOG (HALCINONIDE) [Concomitant]
  15. FOLIC ACID [Concomitant]

REACTIONS (30)
  - ARTHRALGIA [None]
  - BLOOD PRESSURE ABNORMAL [None]
  - BRONCHITIS [None]
  - CHRONIC OBSTRUCTIVE PULMONARY DISEASE [None]
  - CONDITION AGGRAVATED [None]
  - DIABETES MELLITUS [None]
  - DIABETES MELLITUS NON-INSULIN-DEPENDENT [None]
  - DRUG INTERACTION [None]
  - FATIGUE [None]
  - FEELING HOT [None]
  - HEADACHE [None]
  - HERPES ZOSTER [None]
  - INCORRECT DOSE ADMINISTERED [None]
  - MALAISE [None]
  - MEDICATION ERROR [None]
  - OEDEMA PERIPHERAL [None]
  - OSTEOARTHRITIS [None]
  - PAIN IN EXTREMITY [None]
  - PRURITUS [None]
  - PSORIASIS [None]
  - PYREXIA [None]
  - RASH MACULAR [None]
  - SKIN CHAPPED [None]
  - SKIN EXFOLIATION [None]
  - SKIN HYPERPIGMENTATION [None]
  - SKIN REACTION [None]
  - THERAPY NON-RESPONDER [None]
  - TREATMENT NONCOMPLIANCE [None]
  - UPPER RESPIRATORY TRACT INFECTION [None]
  - WOUND SECRETION [None]
